FAERS Safety Report 20561999 (Version 1)
Quarter: 2022Q1

REPORT INFORMATION
  Report Type: Spontaneous
  Country: US (occurrence: None)
  Receive Date: 20220307
  Receipt Date: 20220307
  Transmission Date: 20220423
  Serious: Yes (Life-Threatening)
  Sender: FDA-Public Use
  Company Number: None

PATIENT
  Age: 47 Year
  Sex: Female
  Weight: 68.04 kg

DRUGS (1)
  1. BAMLANIVIMAB\ETESEVIMAB [Suspect]
     Active Substance: BAMLANIVIMAB\ETESEVIMAB
     Dates: start: 200309, end: 201009

REACTIONS (6)
  - Chest discomfort [None]
  - Dyspnoea [None]
  - Headache [None]
  - Flushing [None]
  - Ocular hyperaemia [None]
  - Incorrect dose administered [None]

NARRATIVE: CASE EVENT DATE: 20220107
